FAERS Safety Report 15650382 (Version 1)
Quarter: 2018Q4

REPORT INFORMATION
  Report Type: Spontaneous
  Country: CZ (occurrence: CZ)
  Receive Date: 20181123
  Receipt Date: 20181123
  Transmission Date: 20190205
  Serious: Yes (Hospitalization)
  Sender: FDA-Public Use
  Company Number: CZ-TEVA-2018-CZ-977591

PATIENT
  Age: 24 Year
  Sex: Female
  Weight: 58 kg

DRUGS (2)
  1. ELOINE [Concomitant]
     Indication: CONTRACEPTION
     Dosage: 1 DOSAGE FORMS DAILY;
     Route: 048
  2. AMOKSIKLAV [Suspect]
     Active Substance: AMOXICILLIN\CLAVULANATE POTASSIUM
     Indication: ANTIBIOTIC THERAPY
     Route: 048
     Dates: start: 20181015, end: 20181021

REACTIONS (3)
  - Rash pruritic [Recovered/Resolved]
  - Rash maculo-papular [Recovered/Resolved]
  - Dermatitis allergic [Recovered/Resolved]

NARRATIVE: CASE EVENT DATE: 20181022
